FAERS Safety Report 9067232 (Version 5)
Quarter: 2013Q2

REPORT INFORMATION
  Report Type: Report from Study
  Country: US (occurrence: US)
  Receive Date: 20130201
  Receipt Date: 20130606
  Transmission Date: 20140414
  Serious: Yes (Hospitalization, Other)
  Sender: FDA-Public Use
  Company Number: US-ABBOTT-12P-163-1027854-00

PATIENT
  Age: 26 Year
  Sex: Male
  Weight: 54.48 kg

DRUGS (5)
  1. HUMIRA [Suspect]
     Indication: CROHN^S DISEASE
     Route: 058
     Dates: start: 20121212, end: 20130206
  2. IMURAN [Suspect]
     Indication: CROHN^S DISEASE
     Dosage: 1.5 TABLETS
     Route: 048
     Dates: start: 20121219
  3. VITAMIN D NOS [Concomitant]
     Indication: PRODUCT USED FOR UNKNOWN INDICATION
  4. TPN [Concomitant]
     Indication: CROHN^S DISEASE
     Route: 042
     Dates: start: 201210
  5. XANAX [Concomitant]
     Indication: ANXIETY

REACTIONS (20)
  - Small intestinal obstruction [Unknown]
  - Intestinal obstruction [Unknown]
  - Pyrexia [Unknown]
  - Nausea [Unknown]
  - Nausea [Not Recovered/Not Resolved]
  - Vomiting [Unknown]
  - Sensation of pressure [Recovering/Resolving]
  - Erythema [Not Recovered/Not Resolved]
  - Rash papular [Recovered/Resolved]
  - Wound [Not Recovered/Not Resolved]
  - Wound drainage [Not Recovered/Not Resolved]
  - Nausea [Unknown]
  - Decreased appetite [Unknown]
  - Abdominal pain [Unknown]
  - Rash [Unknown]
  - Catheter site swelling [Unknown]
  - Erythema [Unknown]
  - Catheter site erythema [Unknown]
  - Catheter site pain [Unknown]
  - Pneumonia [Unknown]
